FAERS Safety Report 5643951-2 (Version None)
Quarter: 2008Q1

REPORT INFORMATION
  Report Type: 
  Country: None (occurrence: None)
  Receive Date: 20080226
  Receipt Date: 20080211
  Transmission Date: 20080703
  Serious: Yes (Life-Threatening, Hospitalization)
  Sender: FDA-Public Use
  Company Number: FLCT20080023

PATIENT
  Age: 64 Year
  Sex: Female
  Weight: 73.4827 kg

DRUGS (2)
  1. FLECTOR PATCH [Suspect]
     Indication: BACK PAIN
     Dosage: 1 PATCH ONCE X 12 HOURS, TOPICAL
     Route: 061
     Dates: start: 20080202, end: 20080202
  2. ANTI-HYPERTENSIVE [Concomitant]

REACTIONS (1)
  - CORONARY ARTERY OCCLUSION [None]
